FAERS Safety Report 11992453 (Version 1)
Quarter: 2016Q1

REPORT INFORMATION
  Report Type: Spontaneous
  Country: US (occurrence: US)
  Receive Date: 20160203
  Receipt Date: 20160203
  Transmission Date: 20160526
  Serious: Yes (Other)
  Sender: FDA-Public Use
  Company Number: US-BRISTOL-MYERS SQUIBB COMPANY-BMS-2016-003822

PATIENT
  Sex: Female

DRUGS (2)
  1. TRIVEXAN [Suspect]
     Active Substance: MEBENDAZOLE\PYRANTEL PAMOATE
     Indication: ATRIAL FIBRILLATION
     Route: 065
  2. COUMADINE [Suspect]
     Active Substance: WARFARIN SODIUM
     Indication: ATRIAL FIBRILLATION
     Route: 065

REACTIONS (1)
  - Cardiac pacemaker insertion [Unknown]
